FAERS Safety Report 7302735-X (Version None)
Quarter: 2011Q1

REPORT INFORMATION
  Report Type: 
  Country: None (occurrence: None)
  Receive Date: 20110218
  Receipt Date: 20110209
  Transmission Date: 20110831
  Serious: Yes (Other)
  Sender: FDA-Public Use
  Company Number: FR-ASTRAZENECA-2011SE08320

PATIENT
  Sex: Male

DRUGS (1)
  1. CRESTOR [Suspect]
     Route: 048
     Dates: start: 20070101, end: 20110101

REACTIONS (3)
  - ECZEMA [None]
  - TRANSAMINASES INCREASED [None]
  - BLOOD CREATINE PHOSPHOKINASE INCREASED [None]
